FAERS Safety Report 14167249 (Version 1)
Quarter: 2017Q4

REPORT INFORMATION
  Report Type: Spontaneous
  Country: US (occurrence: US)
  Receive Date: 20171107
  Receipt Date: 20171107
  Transmission Date: 20180321
  Serious: No
  Sender: FDA-Public Use
  Company Number: US-BAUSCH-BL-2017-009026

PATIENT
  Sex: Female

DRUGS (4)
  1. UCERIS [Suspect]
     Active Substance: BUDESONIDE
     Indication: PROCTITIS ULCERATIVE
     Route: 065
     Dates: start: 201703
  2. LIALDA [Concomitant]
     Active Substance: MESALAMINE
     Indication: PROCTITIS ULCERATIVE
  3. ROWASA [Concomitant]
     Active Substance: MESALAMINE
     Indication: PROCTITIS ULCERATIVE
     Dosage: NIGHTLY
  4. CLINDAMYCIN. [Suspect]
     Active Substance: CLINDAMYCIN
     Indication: SINUSITIS
     Route: 065

REACTIONS (2)
  - Sinusitis [Unknown]
  - Change of bowel habit [Unknown]
